FAERS Safety Report 10606211 (Version 1)
Quarter: 2014Q4

REPORT INFORMATION
  Report Type: Spontaneous
  Country: SE (occurrence: None)
  Receive Date: 20141121
  Receipt Date: 20141121
  Transmission Date: 20150529
  Serious: Yes (Hospitalization)
  Sender: FDA-Public Use
  Company Number: SE-ZYDUS-005542

PATIENT
  Age: 62 Year
  Sex: Male

DRUGS (6)
  1. ENALAPRIL (ENALAPRIL) [Concomitant]
     Active Substance: ENALAPRIL
  2. METOPROLOL (METOPROLOL) [Concomitant]
     Active Substance: METOPROLOL
  3. SODIUM VALPROATE [Suspect]
     Active Substance: VALPROATE SODIUM
     Dosage: 500.00-MG- 1.00 TIMES PER-1.0DAYS / ORAL
     Route: 048
     Dates: start: 20130125, end: 20141007
  4. INSULIN LISPRO (INSULIN LISPRO) [Concomitant]
     Active Substance: INSULIN LISPRO
  5. OLANZAPINE. [Suspect]
     Active Substance: OLANZAPINE
     Dosage: ORAL
     Route: 048
     Dates: start: 20130125, end: 20141007
  6. METFORMIN [Concomitant]
     Active Substance: METFORMIN HYDROCHLORIDE

REACTIONS (6)
  - Fatigue [None]
  - Parkinsonism [None]
  - Confusional state [None]
  - Anxiety [None]
  - Ataxia [None]
  - Disorientation [None]

NARRATIVE: CASE EVENT DATE: 20140919
